FAERS Safety Report 18214834 (Version 1)
Quarter: 2020Q3

REPORT INFORMATION
  Report Type: Spontaneous
  Country: US (occurrence: US)
  Receive Date: 20200831
  Receipt Date: 20200831
  Transmission Date: 20201103
  Serious: No
  Sender: FDA-Public Use
  Company Number: US-GALDERMA-US19076402

PATIENT
  Age: 38 Year
  Sex: Female

DRUGS (1)
  1. EPIDUO FORTE [Suspect]
     Active Substance: ADAPALENE\BENZOYL PEROXIDE
     Indication: ACNE
     Dosage: 0.3% / 2.5%
     Route: 061

REACTIONS (5)
  - Intentional underdose [Recovered/Resolved]
  - Dry skin [Unknown]
  - Erythema [Unknown]
  - Pain of skin [Unknown]
  - Intentional product misuse [Recovered/Resolved]
